FAERS Safety Report 18288874 (Version 1)
Quarter: 2020Q3

REPORT INFORMATION
  Report Type: Spontaneous
  Country: US (occurrence: US)
  Receive Date: 20200921
  Receipt Date: 20200921
  Transmission Date: 20201103
  Serious: No
  Sender: FDA-Public Use
  Company Number: None

PATIENT
  Age: 59 Year
  Sex: Male
  Weight: 87.54 kg

DRUGS (1)
  1. POTASSIUM CHLORIDE EXTENDED RELEASE TABS [Suspect]
     Active Substance: POTASSIUM CHLORIDE
     Indication: HYPOKALAEMIA
     Dosage: ?          OTHER FREQUENCY:ADMINISTERED X2;?
     Route: 048
     Dates: start: 20200919, end: 20200920

REACTIONS (2)
  - Angioedema [None]
  - Pruritus [None]

NARRATIVE: CASE EVENT DATE: 20200920
